FAERS Safety Report 7134989-7 (Version None)
Quarter: 2010Q4

REPORT INFORMATION
  Report Type: 
  Country: None (occurrence: None)
  Receive Date: 20101203
  Receipt Date: 20101201
  Transmission Date: 20110411
  Serious: Yes (Life-Threatening)
  Sender: FDA-Public Use
  Company Number: AU-MERCK-0805AUS00098

PATIENT
  Age: 69 Year
  Sex: Female

DRUGS (2)
  1. ZOCOR [Suspect]
     Route: 048
  2. ERYTHROMYCIN [Suspect]
     Route: 048
     Dates: start: 20070803, end: 20070820

REACTIONS (3)
  - HAEMODIALYSIS [None]
  - RENAL FAILURE ACUTE [None]
  - RHABDOMYOLYSIS [None]
